FAERS Safety Report 7990502-3 (Version None)
Quarter: 2011Q4

REPORT INFORMATION
  Report Type: 
  Country: None (occurrence: None)
  Receive Date: 20111219
  Receipt Date: 20101202
  Transmission Date: 20120403
  Serious: No
  Sender: FDA-Public Use
  Company Number: US-ASTRAZENECA-2010SE57170

PATIENT
  Age: 76 Year
  Sex: Male
  Weight: 113.4 kg

DRUGS (8)
  1. ASPIRIN [Concomitant]
  2. PLAVIX [Concomitant]
  3. CRESTOR [Suspect]
     Route: 048
     Dates: start: 20090101
  4. VITAMIN D [Concomitant]
  5. DIOVAN [Concomitant]
  6. VITAMIN C [Concomitant]
  7. FINASTERIDE [Concomitant]
  8. COREG [Concomitant]

REACTIONS (2)
  - BONE DISORDER [None]
  - LOOSE TOOTH [None]
